FAERS Safety Report 22645489 (Version 1)
Quarter: 2023Q2

REPORT INFORMATION
  Report Type: Spontaneous
  Country: US (occurrence: US)
  Receive Date: 20230627
  Receipt Date: 20230627
  Transmission Date: 20230722
  Serious: Yes (Hospitalization, Other)
  Sender: FDA-Public Use
  Company Number: US-ViiV Healthcare Limited-US2023GSK085404

PATIENT

DRUGS (10)
  1. DOLUTEGRAVIR [Suspect]
     Active Substance: DOLUTEGRAVIR
     Indication: HIV infection
     Dosage: UNK
  2. LAMIVUDINE [Suspect]
     Active Substance: LAMIVUDINE
     Indication: HIV infection
     Dosage: UNK
  3. EMTRICITABINE [Suspect]
     Active Substance: EMTRICITABINE
     Indication: HIV infection
     Dosage: UNK
  4. TENOFOVIR ALAFENAMIDE [Suspect]
     Active Substance: TENOFOVIR ALAFENAMIDE
     Indication: HIV infection
     Dosage: UNK
  5. RIFAMPIN [Suspect]
     Active Substance: RIFAMPIN
     Indication: Tuberculosis
     Dosage: UNK
  6. ISONIAZID [Suspect]
     Active Substance: ISONIAZID
     Indication: Tuberculosis
     Dosage: UNK
  7. PYRAZINAMIDE [Suspect]
     Active Substance: PYRAZINAMIDE
     Indication: Tuberculosis
     Dosage: UNK
  8. ETHAMBUTOL [Suspect]
     Active Substance: ETHAMBUTOL HYDROCHLORIDE
     Indication: Tuberculosis
     Dosage: UNK
  9. SULFAMETHOXAZOLE\TRIMETHOPRIM [Concomitant]
     Active Substance: SULFAMETHOXAZOLE\TRIMETHOPRIM
     Indication: Antifungal prophylaxis
     Dosage: UNK
  10. FLUCONAZOLE [Concomitant]
     Active Substance: FLUCONAZOLE
     Indication: Oral candidiasis
     Dosage: UNK

REACTIONS (18)
  - Immune reconstitution inflammatory syndrome associated tuberculosis [Recovered/Resolved]
  - Disseminated tuberculosis [Recovered/Resolved]
  - Virologic failure [Unknown]
  - Pyrexia [Unknown]
  - Chills [Unknown]
  - Tachycardia [Unknown]
  - Hyperhidrosis [Unknown]
  - Fatigue [Unknown]
  - Headache [Unknown]
  - Night sweats [Unknown]
  - Lymphadenopathy mediastinal [Unknown]
  - Tachypnoea [Unknown]
  - Pulmonary mass [Unknown]
  - Liver injury [Unknown]
  - Leukocytosis [Unknown]
  - Lactic acidosis [Unknown]
  - Mediastinal mass [Unknown]
  - Lymphadenopathy [Unknown]
